FAERS Safety Report 9004999 (Version 2)
Quarter: 2013Q1

REPORT INFORMATION
  Report Type: Spontaneous
  Country: US (occurrence: US)
  Receive Date: 20130109
  Receipt Date: 20130226
  Transmission Date: 20140127
  Serious: Yes (Hospitalization)
  Sender: FDA-Public Use
  Company Number: US-JNJFOC-20130102401

PATIENT
  Age: 57 Year
  Sex: Female
  Weight: 60.8 kg

DRUGS (14)
  1. DURAGESIC [Suspect]
     Indication: PAIN
     Route: 062
  2. DURAGESIC [Suspect]
     Indication: PAIN
     Route: 062
     Dates: start: 200904
  3. NERATINIB [Suspect]
     Indication: BREAST CANCER
     Route: 065
     Dates: start: 20110221
  4. PLACEBO [Suspect]
     Indication: BREAST CANCER
     Route: 065
     Dates: start: 20110221
  5. KLONOPIN [Concomitant]
     Indication: ANXIETY
     Route: 065
     Dates: start: 1996
  6. SOMA [Concomitant]
     Indication: PAIN
     Route: 065
  7. LORTAB [Concomitant]
     Indication: PAIN
     Route: 065
     Dates: start: 200908
  8. TAMOXIFEN [Concomitant]
     Indication: BREAST CANCER
     Route: 065
     Dates: start: 20100729
  9. DITROPAN [Concomitant]
     Indication: HYPERTONIC BLADDER
     Route: 065
     Dates: start: 2007
  10. LASIX [Concomitant]
     Indication: PRODUCT USED FOR UNKNOWN INDICATION
     Route: 065
  11. POTASSIUM CHLORIDE [Concomitant]
     Indication: SUPPLEMENTATION THERAPY
     Route: 065
     Dates: start: 2009
  12. DIURETIC [Concomitant]
     Indication: SUPPLEMENTATION THERAPY
     Route: 065
     Dates: start: 2009
  13. ZANAFLEX [Concomitant]
     Indication: BACK PAIN
     Route: 065
     Dates: start: 2008
  14. ASPIRIN [Concomitant]
     Indication: PROPHYLAXIS
     Route: 065
     Dates: start: 2008

REACTIONS (3)
  - Pneumonia [Recovered/Resolved]
  - Mental status changes [Recovered/Resolved]
  - Sinusitis [Unknown]
